FAERS Safety Report 16263126 (Version 5)
Quarter: 2021Q2

REPORT INFORMATION
  Report Type: Spontaneous
  Country: US (occurrence: US)
  Receive Date: 20190502
  Receipt Date: 20210625
  Transmission Date: 20210716
  Serious: Yes (Other)
  Sender: FDA-Public Use
  Company Number: US-AMGEN-USASP2019066974

PATIENT
  Age: 58 Year
  Sex: Female

DRUGS (4)
  1. XGEVA [Suspect]
     Active Substance: DENOSUMAB
     Indication: BREAST CANCER METASTATIC
     Dosage: UNK
     Route: 065
     Dates: end: 201810
  2. XGEVA [Suspect]
     Active Substance: DENOSUMAB
     Dosage: UNK
     Route: 065
     Dates: start: 20190410
  3. AROMASIN [Concomitant]
     Active Substance: EXEMESTANE
     Dosage: UNK
  4. FOSAMAX [Concomitant]
     Active Substance: ALENDRONATE SODIUM
     Dosage: UNK

REACTIONS (4)
  - Breast cancer metastatic [Unknown]
  - Tooth extraction [Unknown]
  - Osteonecrosis of jaw [Recovered/Resolved]
  - Tooth fracture [Unknown]

NARRATIVE: CASE EVENT DATE: 2019
